FAERS Safety Report 12500108 (Version 1)
Quarter: 2016Q2

REPORT INFORMATION
  Report Type: Spontaneous
  Country: US (occurrence: None)
  Receive Date: 20160624
  Receipt Date: 20160624
  Transmission Date: 20160815
  Serious: Yes (Hospitalization)
  Sender: FDA-Public Use
  Company Number: None

PATIENT
  Age: 70 Year
  Sex: Male

DRUGS (8)
  1. LISINOPRIL. [Concomitant]
     Active Substance: LISINOPRIL
  2. GLIPIZIDE. [Concomitant]
     Active Substance: GLIPIZIDE
  3. TEMOZOLOMIDE 100MG [Concomitant]
     Active Substance: TEMOZOLOMIDE
     Indication: BRAIN NEOPLASM MALIGNANT
     Dosage: TEMOZOLOMIDE 200MG DAILY FOR 5 DAYS PO
     Route: 048
     Dates: start: 20150530, end: 201606
  4. BUSPIRONE [Concomitant]
     Active Substance: BUSPIRONE HYDROCHLORIDE
  5. TEMOZOLOMIDE 180MG [Suspect]
     Active Substance: TEMOZOLOMIDE
     Indication: BRAIN NEOPLASM MALIGNANT
     Dosage: TEMOZOLOMIDE 180MG DAILY FOR 5 DAYS PO
     Route: 048
     Dates: start: 20150530, end: 201606
  6. TAMSULOSIN [Concomitant]
     Active Substance: TAMSULOSIN
  7. SIMVASTATIN. [Concomitant]
     Active Substance: SIMVASTATIN
  8. LEVETIRACETA [Concomitant]

REACTIONS (2)
  - Therapy cessation [None]
  - Hospice care [None]

NARRATIVE: CASE EVENT DATE: 201606
